FAERS Safety Report 15683299 (Version 1)
Quarter: 2018Q4

REPORT INFORMATION
  Report Type: Spontaneous
  Country: US (occurrence: US)
  Receive Date: 20181204
  Receipt Date: 20181204
  Transmission Date: 20190205
  Serious: No
  Sender: FDA-Public Use
  Company Number: US-JNJFOC-20181125019

PATIENT
  Sex: Female

DRUGS (3)
  1. ROGAINE [Suspect]
     Active Substance: MINOXIDIL
     Indication: PRODUCT USED FOR UNKNOWN INDICATION
     Route: 061
  2. ROGAINE [Suspect]
     Active Substance: MINOXIDIL
     Route: 061
  3. KETOCONAZOLE. [Concomitant]
     Active Substance: KETOCONAZOLE
     Indication: PRODUCT USED FOR UNKNOWN INDICATION
     Route: 061

REACTIONS (4)
  - Hair disorder [Unknown]
  - Off label use [Unknown]
  - Contraindicated product administered [Unknown]
  - Product packaging issue [Unknown]
